FAERS Safety Report 18919256 (Version 6)
Quarter: 2022Q2

REPORT INFORMATION
  Report Type: Report from Study
  Country: EG (occurrence: EG)
  Receive Date: 20210220
  Receipt Date: 20220407
  Transmission Date: 20220721
  Serious: Yes (Hospitalization, Other)
  Sender: FDA-Public Use
  Company Number: EG-NOVARTISPH-NVSC2021EG037476

PATIENT
  Sex: Female

DRUGS (16)
  1. GILENYA [Suspect]
     Active Substance: FINGOLIMOD HYDROCHLORIDE
     Indication: Multiple sclerosis
     Dosage: 0.5 MG, QD
     Route: 048
     Dates: start: 2019
  2. GILENYA [Suspect]
     Active Substance: FINGOLIMOD HYDROCHLORIDE
     Dosage: 0.5 MG, QD
     Route: 048
     Dates: start: 202101, end: 20210901
  3. GILENYA [Suspect]
     Active Substance: FINGOLIMOD HYDROCHLORIDE
     Dosage: UNK
     Route: 048
     Dates: start: 20211108
  4. BONE CARE [Concomitant]
     Active Substance: ATRACTYLODES LANCEA ROOT
     Indication: Product used for unknown indication
     Dosage: 1 DF, QD
     Route: 065
  5. DELTAVIT B12 [Concomitant]
     Indication: Multiple sclerosis
     Dosage: 1 DF, QD
     Route: 065
     Dates: start: 2017
  6. CIDOPHAGE [Concomitant]
     Indication: Product used for unknown indication
     Dosage: UNK UNK, QD
     Route: 065
  7. .ALPHA.-LIPOIC ACID [Concomitant]
     Active Substance: .ALPHA.-LIPOIC ACID
     Indication: Product used for unknown indication
     Dosage: 1 DF, BEFORE BREAKFAST
     Route: 065
  8. TEARS GUARD [Concomitant]
     Indication: Product used for unknown indication
     Dosage: UNK, QD
     Route: 065
  9. GAPTIN [Concomitant]
     Indication: Multiple sclerosis
     Dosage: 1 DF, QD (400)
     Route: 065
     Dates: start: 2017
  10. GAPTIN [Concomitant]
     Indication: Hypoaesthesia
     Dosage: 1 DOSAGE FORM, QD
     Route: 048
     Dates: start: 2019
  11. ESCITALOPRAM OXALATE [Concomitant]
     Active Substance: ESCITALOPRAM OXALATE
     Indication: Product used for unknown indication
     Dosage: 0.5 DF, QD (HALF TAB)
     Route: 065
  12. ALPHANOVA PLUS [Concomitant]
     Indication: Intraocular pressure increased
     Dosage: UNK, BID
     Route: 065
     Dates: start: 2017
  13. ALPHANOVA PLUS [Concomitant]
     Dosage: UNK, DROPLET BID (OPTHALMIC SOLUTION)
     Route: 047
     Dates: start: 2015
  14. BENFOTIAMINE\CYANOCOBALAMIN\PYRIDOXINE HYDROCHLORIDE [Concomitant]
     Active Substance: BENFOTIAMINE\CYANOCOBALAMIN\PYRIDOXINE HYDROCHLORIDE
     Indication: Multiple sclerosis
     Dosage: 1 DF, QD
     Route: 065
     Dates: start: 2017
  15. OCUGARD [Concomitant]
     Indication: Supplementation therapy
     Dosage: 1 DF, QD
     Route: 065
     Dates: start: 2017
  16. TEGRETOL [Concomitant]
     Active Substance: CARBAMAZEPINE
     Indication: Multiple sclerosis
     Dosage: 1 DOSAGE FORM, QD
     Route: 048

REACTIONS (17)
  - COVID-19 pneumonia [Recovered/Resolved]
  - Pyrexia [Recovered/Resolved]
  - Pain [Recovered/Resolved]
  - Cough [Recovered/Resolved]
  - Eye disorder [Not Recovered/Not Resolved]
  - Deafness [Not Recovered/Not Resolved]
  - Chondropathy [Unknown]
  - Intraocular pressure increased [Recovering/Resolving]
  - Multiple sclerosis [Unknown]
  - White blood cell count decreased [Not Recovered/Not Resolved]
  - Platelet count decreased [Unknown]
  - Bone pain [Not Recovered/Not Resolved]
  - Chest pain [Not Recovered/Not Resolved]
  - Dyspnoea [Not Recovered/Not Resolved]
  - Intervertebral disc protrusion [Not Recovered/Not Resolved]
  - Hypoaesthesia [Not Recovered/Not Resolved]
  - Gait disturbance [Not Recovered/Not Resolved]

NARRATIVE: CASE EVENT DATE: 20190101
